FAERS Safety Report 6387147-8 (Version None)
Quarter: 2009Q4

REPORT INFORMATION
  Report Type: 
  Country: None (occurrence: None)
  Receive Date: 20091002
  Receipt Date: 20090921
  Transmission Date: 20100525
  Serious: Yes (Other)
  Sender: FDA-Public Use
  Company Number: PHEH2009US11361

PATIENT
  Sex: Male

DRUGS (13)
  1. EXJADE [Suspect]
     Indication: ANAEMIA
     Dosage: 1875 MG DAILY
     Route: 048
     Dates: start: 20090630, end: 20090917
  2. EXJADE [Suspect]
     Indication: IRON OVERLOAD
  3. MACROBID [Concomitant]
     Dosage: 100 MG, QD
     Route: 048
  4. ZOCOR [Concomitant]
     Dosage: 20 MG, QD
     Route: 048
  5. PRILOSEC [Concomitant]
     Dosage: 20 MG, QD
     Route: 048
  6. RESTORIL [Concomitant]
     Indication: INSOMNIA
     Dosage: UNK
     Route: 048
  7. DARVOCET-N 100 [Concomitant]
     Dosage: 50 MG, PRN
     Route: 048
  8. COUMADIN [Concomitant]
     Indication: ATRIAL FIBRILLATION
     Dosage: 5 MG, QD
  9. CALCIUM WITH VITAMIN D [Concomitant]
     Dosage: 600 MG, BID
     Route: 048
  10. MINERAL OIL EMULSION [Concomitant]
     Dosage: 4 TBS DAILY
  11. METAMUCIL [Concomitant]
     Dosage: UNK
  12. FLOMAX [Concomitant]
     Dosage: 4 MG, QD
  13. REGLAN [Concomitant]
     Dosage: 10 MG, BID

REACTIONS (9)
  - DECREASED APPETITE [None]
  - FOREIGN BODY IN EYE [None]
  - HEADACHE [None]
  - HYPOACUSIS [None]
  - LACRIMATION INCREASED [None]
  - NAUSEA [None]
  - VISION BLURRED [None]
  - VISUAL ACUITY REDUCED [None]
  - VISUAL FIELD DEFECT [None]
